FAERS Safety Report 7991956-9 (Version None)
Quarter: 2011Q4

REPORT INFORMATION
  Report Type: 
  Country: None (occurrence: None)
  Receive Date: 20111219
  Receipt Date: 20110727
  Transmission Date: 20120403
  Serious: No
  Sender: FDA-Public Use
  Company Number: US-ASTRAZENECA-2011SE44866

PATIENT
  Age: 58 Year
  Sex: Female
  Weight: 75.7 kg

DRUGS (4)
  1. CRESTOR [Suspect]
     Indication: BLOOD CHOLESTEROL INCREASED
     Route: 048
     Dates: start: 20110722, end: 20110725
  2. METFORMIN HCL [Concomitant]
     Indication: DIABETES MELLITUS
  3. RANITIDINE [Concomitant]
  4. LOSARTAN POTASSIUM [Concomitant]

REACTIONS (4)
  - MUSCLE SPASMS [None]
  - MUSCULAR WEAKNESS [None]
  - HEADACHE [None]
  - FEELING ABNORMAL [None]
